FAERS Safety Report 14600910 (Version 2)
Quarter: 2018Q1

REPORT INFORMATION
  Report Type: Spontaneous
  Country: BR (occurrence: BR)
  Receive Date: 20180305
  Receipt Date: 20180327
  Transmission Date: 20180509
  Serious: Yes (Other)
  Sender: FDA-Public Use
  Company Number: BR-TEVA-2018-BR-863973

PATIENT
  Age: 65 Year
  Sex: Male

DRUGS (4)
  1. PRAMIPEXOLE. [Suspect]
     Active Substance: PRAMIPEXOLE
     Indication: PARKINSON^S DISEASE
     Dosage: 1 MG/DAY; DOSE INCREASED TO 3 MG/DAY
     Route: 065
  2. CARBIDOPA AND LEVODOPA [Interacting]
     Active Substance: CARBIDOPA\LEVODOPA
     Indication: PARKINSON^S DISEASE
     Dosage: 25/100 MG THREE TIMES DAILY
     Route: 065
  3. SELEGILINE [Suspect]
     Active Substance: SELEGILINE
     Indication: PARKINSON^S DISEASE
     Dosage: 5MG THREE TIMES DAILY
     Route: 065
  4. PRAMIPEXOLE. [Interacting]
     Active Substance: PRAMIPEXOLE
     Indication: PARKINSON^S DISEASE
     Dosage: 3 MG/DAY; LATER REDUCED TO 1.5 MG/DAY
     Route: 065

REACTIONS (2)
  - Delusional disorder, unspecified type [Recovered/Resolved]
  - Drug interaction [Recovered/Resolved]
